FAERS Safety Report 4906803-9 (Version None)
Quarter: 2006Q1

REPORT INFORMATION
  Report Type: 
  Country: None (occurrence: None)
  Receive Date: 20060207
  Receipt Date: 20060202
  Transmission Date: 20060701
  Serious: Yes (Hospitalization)
  Sender: FDA-Public Use
  Company Number: S06-FRA-00090-01

PATIENT
  Age: 31 Year
  Sex: Female

DRUGS (2)
  1. ESCITALOPRAM OXALATE [Suspect]
     Dosage: 5 MG QD PO
     Route: 048
     Dates: start: 20051125, end: 20051129
  2. ESCITALOPRAM OXALATE [Suspect]
     Dosage: 10 MG QD PO
     Route: 048
     Dates: start: 20051130

REACTIONS (5)
  - DIARRHOEA [None]
  - GALACTORRHOEA [None]
  - NAUSEA [None]
  - PHOTOPSIA [None]
  - VOMITING [None]
